FAERS Safety Report 22069019 (Version 1)
Quarter: 2023Q1

REPORT INFORMATION
  Report Type: Spontaneous
  Country: US (occurrence: US)
  Receive Date: 20230307
  Receipt Date: 20230307
  Transmission Date: 20230417
  Serious: No
  Sender: FDA-Public Use
  Company Number: US-AMNEAL PHARMACEUTICALS-2022-AMRX-00694

PATIENT
  Sex: Female
  Weight: 68.4 kg

DRUGS (1)
  1. RYTARY [Suspect]
     Active Substance: CARBIDOPA\LEVODOPA
     Indication: Product used for unknown indication
     Dosage: 3 CAPSULES, 4X/DAY
     Route: 048
     Dates: start: 20220120, end: 20220309

REACTIONS (4)
  - Panic attack [Recovered/Resolved]
  - Hallucination [Recovered/Resolved]
  - Prescribed overdose [Unknown]
  - Depression [Recovered/Resolved]

NARRATIVE: CASE EVENT DATE: 20210101
